FAERS Safety Report 6326733-8 (Version None)
Quarter: 2009Q3

REPORT INFORMATION
  Report Type: 
  Country: None (occurrence: None)
  Receive Date: 20090825
  Receipt Date: 20090819
  Transmission Date: 20100115
  Serious: Yes (Other)
  Sender: FDA-Public Use
  Company Number: PHHY2009GB29424

PATIENT
  Sex: Female
  Weight: 58 kg

DRUGS (9)
  1. TEGRETOL [Suspect]
     Dosage: 200 MG QAM AND 400 MG QHS
  2. AMLODIPINE [Concomitant]
     Dosage: 5 MG, UNK
  3. RAMIPRIL [Concomitant]
     Indication: BLOOD PRESSURE
     Dosage: 5 MG, UNK
  4. OMEPRAZOLE [Concomitant]
     Indication: GASTROOESOPHAGEAL REFLUX DISEASE
     Dosage: 20 MG, UNK
     Route: 048
     Dates: start: 20090401
  5. GAVISCON [Concomitant]
  6. ACTONEL [Concomitant]
     Indication: OSTEOPOROSIS
     Dosage: 20 MG, UNK
     Route: 048
     Dates: start: 20070901
  7. ASPIRIN [Concomitant]
     Dosage: 75 MG, UNK
     Route: 048
     Dates: start: 20060301
  8. CALCICHEW D3 [Concomitant]
     Indication: OSTEOPOROSIS
     Dosage: 1 DF, BID
     Dates: start: 20060301
  9. COD-LIVER OIL [Concomitant]

REACTIONS (6)
  - CARDIAC MURMUR [None]
  - CARDIAC VALVE DISEASE [None]
  - DIZZINESS [None]
  - FATIGUE [None]
  - HIATUS HERNIA [None]
  - LETHARGY [None]
